FAERS Safety Report 4975834-5 (Version None)
Quarter: 2006Q2

REPORT INFORMATION
  Report Type: 
  Country: None (occurrence: None)
  Receive Date: 20060411
  Receipt Date: 20060327
  Transmission Date: 20061013
  Serious: Yes (Other)
  Sender: FDA-Public Use
  Company Number: 223816

PATIENT

DRUGS (1)
  1. RITUXAN [Suspect]
     Indication: MYELODYSPLASTIC SYNDROME

REACTIONS (2)
  - LYMPHOMA [None]
  - THROMBOCYTOPENIA [None]
